FAERS Safety Report 6834428-7 (Version None)
Quarter: 2010Q3

REPORT INFORMATION
  Report Type: 
  Country: None (occurrence: None)
  Receive Date: 20100712
  Receipt Date: 20070620
  Transmission Date: 20110219
  Serious: No
  Sender: FDA-Public Use
  Company Number: US-PFIZER INC-2007034000

PATIENT
  Sex: Female
  Weight: 90 kg

DRUGS (8)
  1. CHANTIX [Suspect]
     Indication: SMOKING CESSATION THERAPY
     Dates: start: 20070301
  2. TEGRETOL [Concomitant]
  3. CITALOPRAM HYDROBROMIDE [Concomitant]
  4. TETRACYCLINE [Concomitant]
  5. LORATADINE [Concomitant]
  6. OMEPRAZOLE [Concomitant]
  7. HALDOL [Concomitant]
     Route: 051
  8. OXYBUTIN [Concomitant]

REACTIONS (3)
  - ABNORMAL DREAMS [None]
  - FATIGUE [None]
  - FEELING ABNORMAL [None]
